FAERS Safety Report 5372852-2 (Version None)
Quarter: 2007Q2

REPORT INFORMATION
  Report Type: 
  Country: None (occurrence: None)
  Receive Date: 20070531
  Receipt Date: 20070321
  Transmission Date: 20071010
  Serious: Yes (Other)
  Sender: FDA-Public Use
  Company Number: WSDF_00631

PATIENT
  Age: 14 Year
  Sex: Female
  Weight: 88.5 kg

DRUGS (3)
  1. WINRHO [Suspect]
     Indication: IDIOPATHIC THROMBOCYTOPENIC PURPURA
     Dosage: 6600 MCG ONCE IV
     Route: 042
     Dates: start: 20060517, end: 20060517
  2. DIPHENHYDRAMINE HCL [Concomitant]
  3. ACETAMINOPHEN [Concomitant]

REACTIONS (2)
  - CHILLS [None]
  - PYREXIA [None]
